FAERS Safety Report 16347015 (Version 3)
Quarter: 2025Q3

REPORT INFORMATION
  Report Type: Report from Study
  Country: GB (occurrence: GB)
  Receive Date: 20190523
  Receipt Date: 20250721
  Transmission Date: 20251020
  Serious: Yes (Other)
  Sender: AUROBINDO
  Company Number: GB-AUROBINDO-AUR-APL-2019-028854

PATIENT

DRUGS (2)
  1. RIBAVIRIN [Suspect]
     Active Substance: RIBAVIRIN
     Indication: Respiratory syncytial virus infection
     Route: 048
  2. Immunglobulin [Concomitant]
     Indication: Respiratory syncytial virus infection
     Route: 042

REACTIONS (3)
  - Acute kidney injury [Recovered/Resolved]
  - Haemolysis [Unknown]
  - Off label use [Unknown]
